FAERS Safety Report 9402693 (Version 2)
Quarter: 2013Q3

REPORT INFORMATION
  Report Type: Spontaneous
  Country: DK (occurrence: DE)
  Receive Date: 20130716
  Receipt Date: 20130801
  Transmission Date: 20140515
  Serious: Yes (Hospitalization, Disabling)
  Sender: FDA-Public Use
  Company Number: DE-FRI-1000046713

PATIENT
  Age: 49 Year
  Sex: Male

DRUGS (6)
  1. CITALOPRAM [Suspect]
     Dosage: 30 MG
     Route: 048
     Dates: start: 2007
  2. QUETIAPIN [Suspect]
     Dosage: 30 MG
     Route: 048
     Dates: start: 201206
  3. QUETIAPIN [Suspect]
     Dosage: 25 MG
     Route: 048
  4. MIRTAZAPIN [Suspect]
     Dosage: 30 MG
     Route: 048
     Dates: start: 2002
  5. MIRTAZAPIN [Suspect]
     Dosage: 15 MG
     Route: 048
     Dates: end: 201306
  6. ZYPREXA [Suspect]
     Dosage: 2.5 MG
     Route: 048
     Dates: start: 201005, end: 201206

REACTIONS (2)
  - Osteonecrosis [Not Recovered/Not Resolved]
  - Weight increased [Not Recovered/Not Resolved]
